FAERS Safety Report 24879397 (Version 1)
Quarter: 2025Q1

REPORT INFORMATION
  Report Type: Spontaneous
  Country: US (occurrence: None)
  Receive Date: 20250123
  Receipt Date: 20250123
  Transmission Date: 20250409
  Serious: Yes (Hospitalization)
  Sender: FDA-CTU
  Company Number: None

PATIENT
  Age: 77 Year
  Sex: Male

DRUGS (1)
  1. VENCLEXTA [Suspect]
     Active Substance: VENETOCLAX
     Indication: Myelodysplastic syndrome
     Dosage: 100MG QD 14 DAYS ON 14 DAYS OFF ORAL ?
     Route: 048

REACTIONS (3)
  - Arthralgia [None]
  - Gait inability [None]
  - Complication associated with device [None]

NARRATIVE: CASE EVENT DATE: 20250121
